FAERS Safety Report 8819139 (Version 1)
Quarter: 2012Q4

REPORT INFORMATION
  Report Type: 
  Country: US (occurrence: US)
  Receive Date: 20121002
  Receipt Date: 20121002
  Transmission Date: 20130627
  Serious: No
  Sender: FDA-Public Use
  Company Number: US-PFIZER INC-2012241884

PATIENT
  Age: 4 None
  Sex: Female

DRUGS (1)
  1. ADVIL [Suspect]
     Dosage: 200 mg, UNK
     Route: 048

REACTIONS (3)
  - Poor quality drug administered [Unknown]
  - Abdominal pain upper [Unknown]
  - Product odour abnormal [Unknown]
